FAERS Safety Report 6931423-4 (Version None)
Quarter: 2010Q3

REPORT INFORMATION
  Report Type: 
  Country: None (occurrence: None)
  Receive Date: 20100819
  Receipt Date: 20100809
  Transmission Date: 20110219
  Serious: Yes (Other)
  Sender: FDA-Public Use
  Company Number: US-ELI_LILLY_AND_COMPANY-US201001003863

PATIENT
  Sex: Male
  Weight: 89.796 kg

DRUGS (3)
  1. BYETTA [Suspect]
     Dosage: UNK, UNK
     Dates: start: 20050301, end: 20080630
  2. INSULIN [Concomitant]
     Indication: DIABETES MELLITUS
  3. LIPITOR [Concomitant]
     Indication: BLOOD CHOLESTEROL

REACTIONS (5)
  - OFF LABEL USE [None]
  - PAIN [None]
  - PANCREATIC DISORDER [None]
  - PANCREATITIS ACUTE [None]
  - PANCREATITIS CHRONIC [None]
